FAERS Safety Report 15821192 (Version 2)
Quarter: 2019Q1

REPORT INFORMATION
  Report Type: Spontaneous
  Country: SK (occurrence: SK)
  Receive Date: 20190114
  Receipt Date: 20190205
  Transmission Date: 20190417
  Serious: Yes (Other)
  Sender: FDA-Public Use
  Company Number: SK-SA-2018SA266179

PATIENT
  Age: 59 Year
  Sex: Male

DRUGS (10)
  1. METOPROLOL TARTRATE. [Interacting]
     Active Substance: METOPROLOL TARTRATE
     Dosage: 50 MG, QD
     Route: 048
  2. ACETYLSALICYLIC ACID [Interacting]
     Active Substance: ASPIRIN
     Dosage: 100 MG, QD
  3. METFORMIN HYDROCHLORIDE. [Interacting]
     Active Substance: METFORMIN HYDROCHLORIDE
     Dosage: 2 DF
  4. URAPIDIL [Interacting]
     Active Substance: URAPIDIL
     Dosage: 3 MG, QD
  5. METOPROLOL TARTRATE. [Interacting]
     Active Substance: METOPROLOL TARTRATE
     Dosage: 1 DF
  6. ACETYLSALICYLIC ACID [Interacting]
     Active Substance: ASPIRIN
     Dosage: 100 MG, QD
  7. GLIMEPIRIDE. [Suspect]
     Active Substance: GLIMEPIRIDE
     Indication: DIABETES MELLITUS
     Dosage: 6 MG, QD
     Route: 048
  8. METFORMIN HYDROCHLORIDE. [Interacting]
     Active Substance: METFORMIN HYDROCHLORIDE
     Indication: DIABETES MELLITUS
     Dosage: 1000 MG, BID
  9. URAPIDIL [Interacting]
     Active Substance: URAPIDIL
     Dosage: 30 MG, BID
  10. URAPIDIL [Interacting]
     Active Substance: URAPIDIL
     Dosage: 2 DF

REACTIONS (3)
  - Diabetes mellitus [Unknown]
  - Erectile dysfunction [Not Recovered/Not Resolved]
  - Drug interaction [Unknown]
